FAERS Safety Report 8153489-9 (Version None)
Quarter: 2012Q1

REPORT INFORMATION
  Report Type: 
  Country: None (occurrence: None)
  Receive Date: 20120103
  Receipt Date: 20111107
  Transmission Date: 20120608
  Serious: No
  Sender: FDA-Public Use
  Company Number: AE-2011-002679

PATIENT
  Sex: Male

DRUGS (5)
  1. INCIVEK [Suspect]
     Dosage: 2250 MG (750 MG,1 IN 8 HR),ORAL
     Route: 048
     Dates: start: 20111013
  2. RIBASPHERE [Concomitant]
  3. PEGASYS [Concomitant]
  4. AVODART [Concomitant]
  5. RAPAFLO [Concomitant]

REACTIONS (3)
  - ANORECTAL DISCOMFORT [None]
  - ANAL PRURITUS [None]
  - DIARRHOEA [None]
